FAERS Safety Report 26169461 (Version 1)
Quarter: 2025Q4

REPORT INFORMATION
  Report Type: Spontaneous
  Country: US (occurrence: US)
  Receive Date: 20251217
  Receipt Date: 20251217
  Transmission Date: 20260118
  Serious: Yes (Death, Other)
  Sender: CIPLA
  Company Number: US-CIPLA (EU) LIMITED-2025US15694

PATIENT

DRUGS (2)
  1. LENALIDOMIDE [Suspect]
     Active Substance: LENALIDOMIDE
     Indication: B-cell lymphoma unclassifiable
     Dosage: 10 MILLIGRAM, QD (FOR 21 DAYS ON, THEN 7 DAYS OFF)
     Route: 048
     Dates: start: 20250906
  2. LENALIDOMIDE [Suspect]
     Active Substance: LENALIDOMIDE
     Indication: Metastases to lymph nodes

REACTIONS (1)
  - Death [Fatal]

NARRATIVE: CASE EVENT DATE: 20251109
